FAERS Safety Report 5371494-2 (Version None)
Quarter: 2007Q2

REPORT INFORMATION
  Report Type: 
  Country: None (occurrence: None)
  Receive Date: 20070622
  Receipt Date: 20070613
  Transmission Date: 20071010
  Serious: Yes (Other)
  Sender: FDA-Public Use
  Company Number: 2007324063

PATIENT
  Age: 80 Year
  Sex: Female
  Weight: 58.514 kg

DRUGS (1)
  1. BENADRYL [Suspect]
     Indication: PRURITUS
     Dosage: 2 TABLETS EVERY 4 HRS.,ORAL
     Route: 048
     Dates: start: 20070611, end: 20070612

REACTIONS (4)
  - AGITATION [None]
  - CONFUSIONAL STATE [None]
  - DISORIENTATION [None]
  - HALLUCINATION, VISUAL [None]
